FAERS Safety Report 21735769 (Version 6)
Quarter: 2023Q2

REPORT INFORMATION
  Report Type: Spontaneous
  Country: US (occurrence: US)
  Receive Date: 20221215
  Receipt Date: 20230419
  Transmission Date: 20230722
  Serious: Yes (Hospitalization, Disabling, Other)
  Sender: FDA-Public Use
  Company Number: US-SANOFI-01403600

PATIENT
  Age: 66 Year
  Sex: Male
  Weight: 61.5 kg

DRUGS (21)
  1. DUPIXENT [Suspect]
     Active Substance: DUPILUMAB
     Indication: Pruritus
     Dosage: 600 MG, 1X
     Route: 065
     Dates: start: 20190422, end: 20190422
  2. DUPIXENT [Suspect]
     Active Substance: DUPILUMAB
     Indication: Dermatitis atopic
     Dosage: 300 MG, QOW
     Route: 065
     Dates: start: 2019, end: 2019
  3. RITUXIMAB [Concomitant]
     Active Substance: RITUXIMAB
     Dosage: RITUXIMAB 1000MG FLAT DOSE
  4. XARELTO [Concomitant]
     Active Substance: RIVAROXABAN
     Dosage: 10 MG, QD
     Route: 048
  5. PLAVIX [Concomitant]
     Active Substance: CLOPIDOGREL BISULFATE
     Dosage: 75 MG, QD
     Route: 048
  6. PREDNISONE [Concomitant]
     Active Substance: PREDNISONE
     Dosage: UNK
  7. FLUOCINOLONE ACETONIDE [Concomitant]
     Active Substance: FLUOCINOLONE ACETONIDE
     Dosage: ADMINISTER 1 APPLICATION INTO THE AFFECTED EAR(S) DAILY
  8. HYDROCHLOROTHIAZIDE [Concomitant]
     Active Substance: HYDROCHLOROTHIAZIDE
     Dosage: 1 DF, QD
     Route: 048
  9. HYDROCORTISONE [Concomitant]
     Active Substance: HYDROCORTISONE
     Dosage: 100MG INTRAMUSCULARLY IN CASE OF ADRENAL EMERGENCY
     Route: 030
  10. HYDROXYZINE HYDROCHLORIDE [Concomitant]
     Active Substance: HYDROXYZINE HYDROCHLORIDE
     Dosage: TAKE 1 TABLET BY MOUTH AS NEEDED
     Route: 048
  11. HYDROXYZINE HYDROCHLORIDE [Concomitant]
     Active Substance: HYDROXYZINE HYDROCHLORIDE
     Dosage: 1-2 TABLETS DAILY
     Route: 048
  12. LISINOPRIL [Concomitant]
     Active Substance: LISINOPRIL
     Dosage: 1 DF, QD
     Route: 048
  13. KEPPRA [Concomitant]
     Active Substance: LEVETIRACETAM
     Dosage: UNK UNK, BID
     Route: 048
  14. MOMETASONE [Concomitant]
     Active Substance: MOMETASONE
     Dosage: APPLY 1 APPLICATION TO AFFECTED AREA 2 TIMES A DAY
     Route: 065
  15. MUPIROCIN [Concomitant]
     Active Substance: MUPIROCIN
     Dosage: APPLY 1 APPLICATION TO AFFECTED AREA EVERY 8 HOURS
     Route: 061
  16. HYDROCORTISONE [Concomitant]
     Active Substance: HYDROCORTISONE
     Dosage: 1 DF, BID
     Route: 048
  17. ROSUVASTATIN [Concomitant]
     Active Substance: ROSUVASTATIN
     Dosage: TAKE 10 MG BY MOUTH DAILY AT BEDTIME.
     Route: 048
  18. CRESTOR [Concomitant]
     Active Substance: ROSUVASTATIN CALCIUM
     Dosage: 10 MG, QD
     Route: 048
  19. HYDRALAZINE HYDROCHLORIDE [Concomitant]
     Active Substance: HYDRALAZINE HYDROCHLORIDE
     Dosage: 10MG QD
     Route: 048
  20. VITAMIN C [Concomitant]
     Active Substance: ASCORBIC ACID
     Dosage: 30G QW
     Route: 042
  21. ASPIRIN [Concomitant]
     Active Substance: ASPIRIN
     Dosage: 1-2 QD
     Route: 048

REACTIONS (15)
  - Cerebrovascular accident [Recovered/Resolved with Sequelae]
  - Ischaemic stroke [Unknown]
  - Thalamic infarction [Unknown]
  - Cerebellar infarction [Unknown]
  - Basal ganglia infarction [Unknown]
  - Brain stem microhaemorrhage [Unknown]
  - Transient ischaemic attack [Unknown]
  - Vasculitis [Recovered/Resolved with Sequelae]
  - Dry skin [Unknown]
  - Ulcer [Unknown]
  - Abdominal distension [Unknown]
  - Dizziness [Unknown]
  - Asthenia [Unknown]
  - Product use in unapproved indication [Unknown]
  - Therapeutic response decreased [Unknown]

NARRATIVE: CASE EVENT DATE: 20190419
